FAERS Safety Report 10633005 (Version 1)
Quarter: 2014Q4

REPORT INFORMATION
  Report Type: Spontaneous
  Country: US (occurrence: US)
  Receive Date: 20141205
  Receipt Date: 20141205
  Transmission Date: 20150529
  Serious: No
  Sender: FDA-Public Use
  Company Number: US-BRISTOL-MYERS SQUIBB COMPANY-21331830

PATIENT
  Age: 87 Year
  Sex: Male
  Weight: 77.1 kg

DRUGS (10)
  1. METOPROLOL [Concomitant]
     Active Substance: METOPROLOL
  2. GLIPIZIDE. [Concomitant]
     Active Substance: GLIPIZIDE
  3. GABAPENTIN. [Concomitant]
     Active Substance: GABAPENTIN
  4. CLINORIL [Concomitant]
     Active Substance: SULINDAC
  5. ELIQUIS [Suspect]
     Active Substance: APIXABAN
     Indication: CEREBROVASCULAR ACCIDENT PROPHYLAXIS
  6. FENOFIBRATE. [Concomitant]
     Active Substance: FENOFIBRATE
  7. VICODIN [Concomitant]
     Active Substance: ACETAMINOPHEN\HYDROCODONE BITARTRATE
  8. FINASTERIDE. [Concomitant]
     Active Substance: FINASTERIDE
  9. AMIODARONE [Concomitant]
     Active Substance: AMIODARONE
  10. ASACOL [Concomitant]
     Active Substance: MESALAMINE

REACTIONS (1)
  - Sciatica [Unknown]
